FAERS Safety Report 6740075-8 (Version None)
Quarter: 2010Q2

REPORT INFORMATION
  Report Type: 
  Country: None (occurrence: None)
  Receive Date: 20100525
  Receipt Date: 20100118
  Transmission Date: 20101027
  Serious: No
  Sender: FDA-Public Use
  Company Number: A0839966A

PATIENT
  Age: 74 Year
  Sex: Female

DRUGS (7)
  1. BACTROBAN [Suspect]
     Indication: SKIN INFECTION
     Dosage: 1G THREE TIMES PER DAY
     Route: 045
     Dates: start: 20091217
  2. LEVOXYL [Concomitant]
  3. LISINOPRIL [Concomitant]
  4. CRESTOR [Concomitant]
  5. MULTI-VITAMIN [Concomitant]
  6. VITAMIN-MINERAL COMPOUND TAB [Concomitant]
  7. ASPIRIN [Concomitant]

REACTIONS (1)
  - DRUG INEFFECTIVE [None]
